FAERS Safety Report 7268862-0 (Version None)
Quarter: 2011Q1

REPORT INFORMATION
  Report Type: 
  Country: None (occurrence: None)
  Receive Date: 20110201
  Receipt Date: 20110125
  Transmission Date: 20110831
  Serious: Yes (Other)
  Sender: FDA-Public Use
  Company Number: GB-PFIZER INC-2011018169

PATIENT
  Age: 69 Year
  Sex: Female

DRUGS (1)
  1. EPANUTIN [Suspect]
     Indication: PROPHYLAXIS
     Dosage: UNK

REACTIONS (1)
  - GAMMA-GLUTAMYLTRANSFERASE INCREASED [None]
